FAERS Safety Report 4718891-3 (Version None)
Quarter: 2005Q3

REPORT INFORMATION
  Report Type: 
  Country: None (occurrence: None)
  Receive Date: 20050719
  Receipt Date: 20050704
  Transmission Date: 20060218
  Serious: Yes (Hospitalization)
  Sender: FDA-Public Use
  Company Number: 2005082714

PATIENT
  Age: 63 Year
  Sex: Male
  Weight: 62.3 kg

DRUGS (3)
  1. IRINOTECAN HCL [Suspect]
     Indication: SMALL CELL LUNG CANCER STAGE UNSPECIFIED
     Dosage: 100 MG, INTRAVENOUS
     Route: 042
     Dates: start: 20050425, end: 20050425
  2. CISPLATIN [Suspect]
     Indication: SMALL CELL LUNG CANCER STAGE UNSPECIFIED
     Dosage: 100 MG, INTRAVENOUS
     Route: 042
     Dates: start: 20050425, end: 20050425
  3. PREDNISONE [Concomitant]

REACTIONS (2)
  - INTERSTITIAL LUNG DISEASE [None]
  - METASTASES TO ADRENALS [None]
